FAERS Safety Report 12219255 (Version 1)
Quarter: 2016Q1

REPORT INFORMATION
  Report Type: Spontaneous
  Country: US (occurrence: US)
  Receive Date: 20160329
  Receipt Date: 20160329
  Transmission Date: 20160526
  Serious: Yes (Death)
  Sender: FDA-Public Use
  Company Number: US-FRI-1000083583

PATIENT
  Sex: Male

DRUGS (1)
  1. CAMPRAL [Suspect]
     Active Substance: ACAMPROSATE CALCIUM

REACTIONS (1)
  - Death [Fatal]
